FAERS Safety Report 17907727 (Version 3)
Quarter: 2021Q2

REPORT INFORMATION
  Report Type: Spontaneous
  Country: US (occurrence: US)
  Receive Date: 20200617
  Receipt Date: 20210617
  Transmission Date: 20210717
  Serious: Yes (Other)
  Sender: FDA-Public Use
  Company Number: US-PFIZER INC-2020231665

PATIENT
  Age: 52 Year
  Sex: Male
  Weight: 82 kg

DRUGS (13)
  1. NEOSTIGMINE. [Suspect]
     Active Substance: NEOSTIGMINE METHYLSULFATE
     Indication: ANAESTHESIA
     Dosage: 2.5 MG (OVER FIVE MINUTES)
     Route: 042
  2. PROPRANOLOL [Concomitant]
     Active Substance: PROPRANOLOL HYDROCHLORIDE
     Indication: ATRIAL TACHYCARDIA
     Dosage: 40 MG
  3. THIOPENTAL [Concomitant]
     Active Substance: THIOPENTAL
     Indication: ANAESTHESIA
     Dosage: 250 MG
  4. NITROUS OXIDE. [Concomitant]
     Active Substance: NITROUS OXIDE
     Indication: ANAESTHESIA
     Dosage: 70 %
  5. ATROPINE SULFATE. [Suspect]
     Active Substance: ATROPINE SULFATE
     Dosage: 1.25 MG (OVER FIVE MINUTES.)
     Route: 042
  6. ATROPINE SULFATE. [Suspect]
     Active Substance: ATROPINE SULFATE
     Dosage: 3 MG (IN DIVIDED DOSES)
     Route: 042
  7. PROPRANOLOL [Concomitant]
     Active Substance: PROPRANOLOL HYDROCHLORIDE
     Indication: SUPRAVENTRICULAR TACHYCARDIA
  8. PENTOBARBITAL. [Concomitant]
     Active Substance: PENTOBARBITAL
     Indication: PREMEDICATION
     Dosage: 100 MG
     Route: 030
  9. PANCURONIUM [Concomitant]
     Active Substance: PANCURONIUM
     Indication: ANAESTHESIA
     Dosage: 8 MG
  10. ATROPINE SULFATE. [Suspect]
     Active Substance: ATROPINE SULFATE
     Dosage: 0.3 MG
     Route: 042
  11. MEPERIDINE [Concomitant]
     Active Substance: MEPERIDINE
     Indication: ANAESTHESIA
     Dosage: 60 MG
  12. MEPERIDINE [Concomitant]
     Active Substance: MEPERIDINE
     Dosage: 100 MG DIVIDED DOSES
  13. MEPERIDINE [Concomitant]
     Active Substance: MEPERIDINE
     Indication: PREMEDICATION
     Dosage: 50 MG
     Route: 030

REACTIONS (1)
  - Bradycardia [Recovered/Resolved]
